FAERS Safety Report 14806237 (Version 1)
Quarter: 2018Q2

REPORT INFORMATION
  Report Type: Spontaneous
  Country: US (occurrence: US)
  Receive Date: 20180425
  Receipt Date: 20180425
  Transmission Date: 20180711
  Serious: No
  Sender: FDA-Public Use
  Company Number: US-UPSHER-SMITH LABORATORIES, LLC-2018USL00082

PATIENT
  Age: 50 Year
  Sex: Female
  Weight: 90.7 kg

DRUGS (5)
  1. QUDEXY XR [Suspect]
     Active Substance: TOPIRAMATE
     Indication: MIGRAINE WITH AURA
     Dosage: 50 MG, 1X/DAY AT NIGHT
     Route: 048
     Dates: start: 2017
  2. ZEMBRACE SYMTOUCH [Concomitant]
     Active Substance: SUMATRIPTAN SUCCINATE
     Dosage: 6 MG, AS DIRECTED
     Dates: start: 201703
  3. QUDEXY XR [Suspect]
     Active Substance: TOPIRAMATE
     Indication: MIGRAINE WITH AURA
     Dosage: 25 MG, 1X/DAY AT NIGHT
     Route: 048
     Dates: start: 201703, end: 2017
  4. ZORVOLEX [Concomitant]
     Active Substance: DICLOFENAC
     Dosage: UNK
     Dates: start: 201703
  5. ALLEGRA OTC [Concomitant]

REACTIONS (7)
  - Insomnia [Recovering/Resolving]
  - Somnolence [Not Recovered/Not Resolved]
  - Sleep apnoea syndrome [Not Recovered/Not Resolved]
  - Memory impairment [Not Recovered/Not Resolved]
  - Drug effect incomplete [Not Recovered/Not Resolved]
  - Feeling abnormal [Not Recovered/Not Resolved]
  - Ear infection [Not Recovered/Not Resolved]

NARRATIVE: CASE EVENT DATE: 2017
